FAERS Safety Report 12689038 (Version 1)
Quarter: 2016Q3

REPORT INFORMATION
  Report Type: Spontaneous
  Country: US (occurrence: US)
  Receive Date: 20160826
  Receipt Date: 20160826
  Transmission Date: 20161109
  Serious: Yes (Other)
  Sender: FDA-Public Use
  Company Number: US-AMGEN-USASP2016110035

PATIENT
  Age: 63 Year
  Sex: Female

DRUGS (1)
  1. EPOGEN [Suspect]
     Active Substance: ERYTHROPOIETIN
     Indication: PRODUCT USED FOR UNKNOWN INDICATION
     Dosage: UNK UNK, UNK
     Route: 065

REACTIONS (5)
  - Renal transplant [Unknown]
  - Blindness [Not Recovered/Not Resolved]
  - Pancreas transplant [Unknown]
  - Dialysis [Unknown]
  - Injection site pain [Unknown]

NARRATIVE: CASE EVENT DATE: 1997
